FAERS Safety Report 5868243-8 (Version None)
Quarter: 2008Q3

REPORT INFORMATION
  Report Type: 
  Country: None (occurrence: None)
  Receive Date: 20080902
  Receipt Date: 20080821
  Transmission Date: 20090109
  Serious: Yes (Life-Threatening, Hospitalization, Other)
  Sender: FDA-Public Use
  Company Number: JP-PFIZER INC-2008070495

PATIENT
  Sex: Female
  Weight: 52.5 kg

DRUGS (4)
  1. SOLU-MEDROL [Suspect]
     Indication: VOGT-KOYANAGI-HARADA SYNDROME
     Route: 042
     Dates: start: 20010623, end: 20010625
  2. PREDNISOLONE [Suspect]
     Indication: VOGT-KOYANAGI-HARADA SYNDROME
     Route: 048
  3. MANNITOL [Concomitant]
     Dates: start: 20010623, end: 20010625
  4. ZANTAC [Concomitant]

REACTIONS (3)
  - DIABETIC HYPERGLYCAEMIC COMA [None]
  - GASTRIC ULCER [None]
  - TYPE 1 DIABETES MELLITUS [None]
